FAERS Safety Report 7860760-4 (Version None)
Quarter: 2011Q4

REPORT INFORMATION
  Report Type: 
  Country: None (occurrence: None)
  Receive Date: 20111027
  Receipt Date: 20111003
  Transmission Date: 20120403
  Serious: No
  Sender: FDA-Public Use
  Company Number: CA-JNJFOC-20111010299

PATIENT
  Sex: Female
  Weight: 73.4 kg

DRUGS (7)
  1. ARTHROTEC [Concomitant]
     Route: 065
  2. PANTOPRAZOLE SODIUM [Concomitant]
     Route: 065
  3. ARAVA [Concomitant]
     Route: 065
  4. REMICADE [Suspect]
     Indication: RHEUMATOID ARTHRITIS
     Route: 042
     Dates: start: 20110919
  5. PREDNISONE [Concomitant]
     Route: 065
  6. PREMARIN [Concomitant]
     Route: 065
  7. AXERT [Concomitant]
     Route: 065

REACTIONS (1)
  - CANDIDIASIS [None]
